FAERS Safety Report 6387007-2 (Version None)
Quarter: 2009Q4

REPORT INFORMATION
  Report Type: 
  Country: None (occurrence: None)
  Receive Date: 20091002
  Receipt Date: 20090924
  Transmission Date: 20100525
  Serious: Yes (Hospitalization)
  Sender: FDA-Public Use
  Company Number: JP-ABBOTT-09P-087-0600017-00

PATIENT
  Age: 77 Year
  Sex: Male

DRUGS (12)
  1. LEUPLIN SR FOR INJECTION 11.25 MG [Suspect]
     Indication: PROSTATE CANCER STAGE II
     Route: 058
     Dates: start: 20070916, end: 20080304
  2. BASEN [Concomitant]
     Indication: DIABETES MELLITUS
     Route: 048
  3. CASODEX [Concomitant]
     Indication: PROSTATE CANCER STAGE II
     Route: 048
     Dates: start: 20070828
  4. RENIVACE [Concomitant]
     Indication: CARDIAC FAILURE CHRONIC
     Route: 048
  5. LASIX [Concomitant]
     Indication: HYPERTENSION
     Route: 048
  6. LANIRAPID [Concomitant]
     Indication: CARDIAC FAILURE CHRONIC
     Route: 048
  7. ASPIRIN [Concomitant]
     Indication: ANGINA PECTORIS
     Route: 048
  8. GASTER D [Concomitant]
     Indication: GASTRIC ULCER
     Route: 048
  9. ARTIST [Concomitant]
     Indication: CARDIAC FAILURE CHRONIC
     Route: 048
  10. LIPOVAS [Concomitant]
     Indication: HYPERLIPIDAEMIA
     Route: 048
  11. WARFARIN SODIUM [Concomitant]
     Indication: ANGINA PECTORIS
     Route: 048
  12. ALLOPURINOL [Concomitant]
     Indication: HYPERURICAEMIA
     Route: 048

REACTIONS (1)
  - HYPERGLYCAEMIA [None]
